FAERS Safety Report 20436820 (Version 2)
Quarter: 2022Q2

REPORT INFORMATION
  Report Type: Spontaneous
  Country: US (occurrence: None)
  Receive Date: 20220207
  Receipt Date: 20220506
  Transmission Date: 20220721
  Serious: Yes (Death, Other)
  Sender: FDA-Public Use
  Company Number: 2022A057233

PATIENT
  Age: 59 Year
  Sex: Female
  Weight: 63 kg

DRUGS (50)
  1. NEXIUM [Suspect]
     Active Substance: ESOMEPRAZOLE MAGNESIUM
     Indication: Gastrooesophageal reflux disease
     Route: 048
     Dates: start: 200806, end: 201102
  2. NEXIUM [Suspect]
     Active Substance: ESOMEPRAZOLE MAGNESIUM
     Indication: Gastrooesophageal reflux disease
     Route: 048
     Dates: start: 2008, end: 2011
  3. OMEPRAZOLE [Suspect]
     Active Substance: OMEPRAZOLE
     Indication: Gastrooesophageal reflux disease
     Route: 048
     Dates: start: 201102, end: 201107
  4. OMEPRAZOLE [Suspect]
     Active Substance: OMEPRAZOLE
     Indication: Gastrooesophageal reflux disease
     Route: 048
     Dates: start: 2008, end: 2011
  5. OMEPRAZOLE [Suspect]
     Active Substance: OMEPRAZOLE
     Indication: Gastrooesophageal reflux disease
     Route: 048
     Dates: start: 201111, end: 201112
  6. OMEPRAZOLE [Suspect]
     Active Substance: OMEPRAZOLE
     Indication: Gastrooesophageal reflux disease
     Route: 048
     Dates: start: 201405, end: 201408
  7. PANTOPRAZOLE [Suspect]
     Active Substance: PANTOPRAZOLE
     Indication: Gastrooesophageal reflux disease
     Route: 048
     Dates: start: 201204, end: 201405
  8. PANTOPRAZOLE [Suspect]
     Active Substance: PANTOPRAZOLE
     Indication: Gastrooesophageal reflux disease
     Route: 048
     Dates: start: 2008, end: 2011
  9. LIPITOR [Concomitant]
     Active Substance: ATORVASTATIN CALCIUM
     Indication: Blood cholesterol
     Dates: start: 200806, end: 200807
  10. ESTRADERM [Concomitant]
     Active Substance: ESTRADIOL
     Indication: Hormone therapy
     Dates: start: 200806, end: 201101
  11. METHYLPREDNISOLONE [Concomitant]
     Active Substance: METHYLPREDNISOLONE
     Indication: Steroid therapy
     Dates: start: 200806, end: 201108
  12. MICARDIS [Concomitant]
     Active Substance: TELMISARTAN
     Indication: Cardiac disorder
     Dates: start: 200806, end: 201108
  13. NITROGLYCERIN [Concomitant]
     Active Substance: NITROGLYCERIN
     Indication: Cardiac disorder
     Dates: start: 200806, end: 200807
  14. FOLIC ACID [Concomitant]
     Active Substance: FOLIC ACID
     Indication: Supplementation therapy
     Dates: start: 200806, end: 201408
  15. ATENOLOL [Concomitant]
     Active Substance: ATENOLOL
     Indication: Blood pressure abnormal
     Dates: start: 200806, end: 201408
  16. ALPRAZOLAM [Concomitant]
     Active Substance: ALPRAZOLAM
     Indication: Sleep disorder
     Dates: start: 200806, end: 201212
  17. METHOTREXATE [Concomitant]
     Active Substance: METHOTREXATE
     Indication: Systemic lupus erythematosus
     Dates: start: 200806, end: 201203
  18. ACETAMINOPHEN\HYDROCODONE BITARTRATE [Concomitant]
     Active Substance: ACETAMINOPHEN\HYDROCODONE BITARTRATE
     Indication: Pain
     Dates: start: 200806, end: 201212
  19. RANITIDINE [Concomitant]
     Active Substance: RANITIDINE
     Dates: start: 201104, end: 201210
  20. ATROPA BELLADONNA\HOMEOPATHICS [Concomitant]
     Active Substance: ATROPA BELLADONNA\HOMEOPATHICS
  21. LIDOCAINE [Concomitant]
     Active Substance: LIDOCAINE
  22. CLONIDINE [Concomitant]
     Active Substance: CLONIDINE
  23. ABILIFY [Concomitant]
     Active Substance: ARIPIPRAZOLE
  24. LUMIGAN [Concomitant]
     Active Substance: BIMATOPROST
  25. TIOTROPIUM [Concomitant]
     Active Substance: TIOTROPIUM
  26. AMLODIPINE [Concomitant]
     Active Substance: AMLODIPINE BESYLATE
  27. ARAVA [Concomitant]
     Active Substance: LEFLUNOMIDE
  28. CHLORTHALIDONE [Concomitant]
     Active Substance: CHLORTHALIDONE
  29. CARVEDILOL [Concomitant]
     Active Substance: CARVEDILOL
  30. SPIRONOLACTONE [Concomitant]
     Active Substance: SPIRONOLACTONE
  31. HYDRALAZINE [Concomitant]
     Active Substance: HYDRALAZINE HYDROCHLORIDE
  32. ENOXAPARIN [Concomitant]
     Active Substance: ENOXAPARIN
  33. ONDANSETRON [Concomitant]
     Active Substance: ONDANSETRON
  34. PIPERACILLIN [Concomitant]
     Active Substance: PIPERACILLIN
  35. GENTAMICIN [Concomitant]
     Active Substance: GENTAMICIN
  36. ETOMIDATE [Concomitant]
     Active Substance: ETOMIDATE
  37. MORPHINE [Concomitant]
     Active Substance: MORPHINE
  38. PHOSLO [Concomitant]
     Active Substance: CALCIUM ACETATE
  39. ALLOPURINOL [Concomitant]
     Active Substance: ALLOPURINOL
  40. FLUCONAZOLE [Concomitant]
     Active Substance: FLUCONAZOLE
  41. VITAMIN D3 [Concomitant]
     Active Substance: CHOLECALCIFEROL
  42. GRANULEX SPR [Concomitant]
  43. PETROLATUM [Concomitant]
     Active Substance: PETROLATUM
  44. RENAGEL [Concomitant]
     Active Substance: SEVELAMER HYDROCHLORIDE
  45. KETOROLAC [Concomitant]
     Active Substance: KETOROLAC TROMETHAMINE
  46. NYSTATIN\TRIAMCINOLONE [Concomitant]
     Active Substance: NYSTATIN\TRIAMCINOLONE
  47. GUAIFENESIN [Concomitant]
     Active Substance: GUAIFENESIN
  48. COLCHICINE [Concomitant]
     Active Substance: COLCHICINE
  49. BIMATOPROST [Concomitant]
     Active Substance: BIMATOPROST
  50. M S CONTIN [Concomitant]

REACTIONS (4)
  - Death [Fatal]
  - Chronic kidney disease [Unknown]
  - Renal failure [Unknown]
  - Acute kidney injury [Unknown]

NARRATIVE: CASE EVENT DATE: 20100101
